FAERS Safety Report 22004512 (Version 1)
Quarter: 2023Q1

REPORT INFORMATION
  Report Type: Spontaneous
  Country: PH (occurrence: PH)
  Receive Date: 20230217
  Receipt Date: 20230217
  Transmission Date: 20230418
  Serious: Yes (Death, Other)
  Sender: FDA-Public Use
  Company Number: PH-PFIZER INC-2018115163

PATIENT
  Age: 73 Year
  Sex: Female

DRUGS (6)
  1. SITAGLIPTIN PHOSPHATE [Suspect]
     Active Substance: SITAGLIPTIN PHOSPHATE
     Route: 048
  2. CATAPRES [Suspect]
     Active Substance: CLONIDINE HYDROCHLORIDE
  3. IRON\VITAMINS [Suspect]
     Active Substance: IRON\VITAMINS
  4. CILOSTAZOL [Suspect]
     Active Substance: CILOSTAZOL
     Dosage: 2 X/DAY
     Dates: end: 20170930
  5. ASPIRIN [Suspect]
     Active Substance: ASPIRIN
     Indication: Hypertension
     Dosage: UNK
     Dates: end: 20170930
  6. PREGABALIN [Suspect]
     Active Substance: PREGABALIN

REACTIONS (1)
  - Cardiac arrest [Fatal]

NARRATIVE: CASE EVENT DATE: 20171001
